FAERS Safety Report 10733308 (Version 6)
Quarter: 2015Q3

REPORT INFORMATION
  Report Type: Spontaneous
  Country: US (occurrence: US)
  Receive Date: 20150123
  Receipt Date: 20150813
  Transmission Date: 20151125
  Serious: Yes (Life-Threatening, Hospitalization)
  Sender: FDA-Public Use
  Company Number: US-BAYER-2015-008701

PATIENT
  Age: 34 Year
  Sex: Female
  Weight: 57.6 kg

DRUGS (3)
  1. CLEOCIN T [Concomitant]
     Active Substance: CLINDAMYCIN PHOSPHATE
  2. PRENATAL VITAMINS [Concomitant]
     Active Substance: VITAMINS
  3. MIRENA [Suspect]
     Active Substance: LEVONORGESTREL
     Indication: CONTRACEPTION
     Dosage: 20 MCG/24HR, CONT
     Route: 015
     Dates: start: 20110810, end: 20130514

REACTIONS (8)
  - Device breakage [None]
  - Injury [None]
  - Device difficult to use [None]
  - Infection [None]
  - General physical health deterioration [None]
  - Uterine perforation [None]
  - Abdominal pain [None]
  - Complication of device removal [None]

NARRATIVE: CASE EVENT DATE: 201303
